FAERS Safety Report 16652444 (Version 1)
Quarter: 2019Q3

REPORT INFORMATION
  Report Type: Spontaneous
  Country: GB (occurrence: GB)
  Receive Date: 20190731
  Receipt Date: 20190731
  Transmission Date: 20191004
  Serious: Yes (Other)
  Sender: FDA-Public Use
  Company Number: GB-PFIZER INC-2019319101

PATIENT
  Age: 60 Year
  Sex: Female
  Weight: 58 kg

DRUGS (11)
  1. RAMIPRIL. [Concomitant]
     Active Substance: RAMIPRIL
     Dosage: 2.5 MG, 1X/DAY
     Dates: start: 2018
  2. EZETIMIBE. [Concomitant]
     Active Substance: EZETIMIBE
     Dosage: 10 MG, 1X/DAY
     Dates: start: 2018
  3. TICAGRELOR. [Concomitant]
     Active Substance: TICAGRELOR
     Dosage: 2 DF, 1X/DAY
     Dates: start: 2018
  4. ACIDEX [CALCIUM CARBONATE;SODIUM ALGINATE;SODIUM BICARBONATE] [Concomitant]
     Dosage: 4 DF, 1X/DAY
     Dates: start: 2018
  5. ZOLEDRONIC ACID [Suspect]
     Active Substance: ZOLEDRONIC ACID
     Indication: OSTEOPOROSIS
     Dosage: 5 MG, UNK
     Route: 042
     Dates: start: 20190401, end: 20190401
  6. ACETYLSALICYLIC ACID [Concomitant]
     Active Substance: ASPIRIN
     Dosage: 75 MG, 1X/DAY
  7. BISOPROLOL [Concomitant]
     Active Substance: BISOPROLOL
     Dosage: 1.25 MG, 1X/DAY
     Dates: start: 2018
  8. NICORANDIL [Concomitant]
     Active Substance: NICORANDIL
     Dosage: 2 DF, 1X/DAY
     Dates: start: 2018
  9. ROSUVASTATIN. [Concomitant]
     Active Substance: ROSUVASTATIN
     Dosage: 5 MG, 1X/DAY
     Dates: start: 2018
  10. ADCAL [CALCIUM CARBONATE] [Concomitant]
     Dosage: 2 DF, 1X/DAY
     Dates: start: 2018
  11. RANITIDINE. [Concomitant]
     Active Substance: RANITIDINE
     Dosage: 300 MG, 1X/DAY
     Dates: start: 2018

REACTIONS (8)
  - Fatigue [Recovering/Resolving]
  - Confusional state [Recovering/Resolving]
  - Headache [Recovering/Resolving]
  - Urinary retention [Recovering/Resolving]
  - Nausea [Recovering/Resolving]
  - Bradyphrenia [Recovering/Resolving]
  - Decreased appetite [Recovering/Resolving]
  - Pain [Recovering/Resolving]

NARRATIVE: CASE EVENT DATE: 20190401
